FAERS Safety Report 15788834 (Version 2)
Quarter: 2019Q1

REPORT INFORMATION
  Report Type: Spontaneous
  Country: US (occurrence: US)
  Receive Date: 20190104
  Receipt Date: 20190228
  Transmission Date: 20190417
  Serious: Yes (Other)
  Sender: FDA-Public Use
  Company Number: US-TEVA-2018-US-993769

PATIENT
  Age: 11 Year
  Sex: Male
  Weight: 44 kg

DRUGS (1)
  1. PROAIR RESPICLICK [Suspect]
     Active Substance: ALBUTEROL SULFATE
     Indication: ASTHMA
     Route: 065
     Dates: start: 2017

REACTIONS (5)
  - Drug ineffective [Unknown]
  - Prescription drug used without a prescription [Unknown]
  - Chest discomfort [Recovered/Resolved]
  - Device malfunction [Unknown]
  - Product substitution issue [Unknown]

NARRATIVE: CASE EVENT DATE: 201812
